FAERS Safety Report 19498915 (Version 2)
Quarter: 2021Q3

REPORT INFORMATION
  Report Type: Report from Study
  Country: US (occurrence: US)
  Receive Date: 20210707
  Receipt Date: 20210717
  Transmission Date: 20211014
  Serious: Yes (Hospitalization)
  Sender: FDA-Public Use
  Company Number: US-ROCHE-2862885

PATIENT
  Age: 81 Year
  Sex: Male

DRUGS (3)
  1. ATEZOLIZUMAB. [Suspect]
     Active Substance: ATEZOLIZUMAB
     Indication: METASTATIC CARCINOMA OF THE BLADDER
     Dosage: COMBINATION THERAPY ON A 21?DAY CYCLE X 4 CYCLES?ON 02/DEC/2019, RECEIVED LAST DOSE OF ATEZOLIZUMAB
     Route: 041
     Dates: start: 20191105
  2. GEMCITABINE. [Suspect]
     Active Substance: GEMCITABINE
     Indication: METASTATIC CARCINOMA OF THE BLADDER
     Dosage: ON 02/DEC/2019, RECEIVED LAST DOSE OF GEMCITABIN PRIOR TO SAE
     Route: 042
     Dates: start: 20191105
  3. CISPLATIN. [Suspect]
     Active Substance: CISPLATIN
     Indication: METASTATIC CARCINOMA OF THE BLADDER
     Dosage: ON 02/DEC/2019, RECEIVED LAST DOSE OF CISPLATIN PRIOR TO SAE
     Route: 042
     Dates: start: 20191105

REACTIONS (1)
  - Cerebrovascular accident [Recovered/Resolved]

NARRATIVE: CASE EVENT DATE: 20191208
